FAERS Safety Report 6239102-6 (Version None)
Quarter: 2009Q2

REPORT INFORMATION
  Report Type: 
  Country: None (occurrence: None)
  Receive Date: 20090617
  Receipt Date: 20090617
  Transmission Date: 20091009
  Serious: No
  Sender: FDA-Public Use
  Company Number: None

PATIENT
  Sex: Male

DRUGS (1)
  1. AVELOX [Suspect]
     Indication: ACUTE SINUSITIS
     Dosage: 400MG QD PO
     Route: 048
     Dates: start: 20090613, end: 20090614

REACTIONS (2)
  - INADEQUATE ANALGESIA [None]
  - SOMNOLENCE [None]
